FAERS Safety Report 5542324-0 (Version None)
Quarter: 2007Q4

REPORT INFORMATION
  Report Type: 
  Country: None (occurrence: None)
  Receive Date: 20071129
  Receipt Date: 20070730
  Transmission Date: 20080405
  Serious: Yes (Hospitalization, Other)
  Sender: FDA-Public Use
  Company Number: US200701006053

PATIENT
  Age: 40 Year
  Sex: Male
  Weight: 89.3 kg

DRUGS (3)
  1. ZYPREXA [Suspect]
     Dosage: 30 MG
     Dates: start: 20020101, end: 20060101
  2. SEROQUEL [Concomitant]
  3. HYDROCHLOROTHIAZIDE [Concomitant]

REACTIONS (8)
  - BLOOD CHOLESTEROL INCREASED [None]
  - DIABETES MELLITUS [None]
  - DIABETIC COMA [None]
  - DIABETIC KETOACIDOSIS [None]
  - HYPERGLYCAEMIA [None]
  - HYPERTENSION [None]
  - OVERDOSE [None]
  - PANCREATITIS [None]
